FAERS Safety Report 4349789-0 (Version None)
Quarter: 2004Q2

REPORT INFORMATION
  Report Type: 
  Country: None (occurrence: None)
  Receive Date: 20040426
  Receipt Date: 20040414
  Transmission Date: 20050107
  Serious: Yes (Other)
  Sender: FDA-Public Use
  Company Number: USA-2004-0013924

PATIENT
  Age: 14 Year
  Sex: Female

DRUGS (2)
  1. SPECTRACEF [Suspect]
     Indication: SINUSITIS
     Dosage: 200 MG, BID, ORAL
     Route: 048
     Dates: start: 20040210
  2. FLONASE [Concomitant]

REACTIONS (4)
  - POLYARTHRITIS [None]
  - SERUM SICKNESS [None]
  - SINUSITIS [None]
  - URTICARIA [None]
